FAERS Safety Report 15163940 (Version 1)
Quarter: 2018Q3

REPORT INFORMATION
  Report Type: Spontaneous
  Country: US (occurrence: US)
  Receive Date: 20180719
  Receipt Date: 20180719
  Transmission Date: 20181010
  Serious: No
  Sender: FDA-Public Use
  Company Number: US-APOTEX-2017AP012861

PATIENT
  Age: 66 Year
  Sex: Female
  Weight: 50.8 kg

DRUGS (5)
  1. ATORVASTATIN CALCIUM. [Suspect]
     Active Substance: ATORVASTATIN CALCIUM
     Indication: BLOOD CHOLESTEROL INCREASED
     Dosage: 10 MG, QD
     Route: 048
     Dates: start: 201209, end: 20170315
  2. MULTIVITAMIN                       /00097801/ [Concomitant]
     Active Substance: VITAMINS
     Indication: SUPPLEMENTATION THERAPY
     Dosage: 1 DF, UNK
     Route: 048
  3. CALCIUM +D                         /00944201/ [Concomitant]
     Active Substance: CALCIUM CARBONATE\CHOLECALCIFEROL
     Indication: SUPPLEMENTATION THERAPY
     Dosage: 600 MG, UNK
     Route: 048
  4. VITAMIN C [Concomitant]
     Active Substance: ASCORBIC ACID
     Indication: SUPPLEMENTATION THERAPY
     Dosage: 500 MG, UNK
     Route: 048
  5. VITAMIN D                          /00107901/ [Concomitant]
     Active Substance: ERGOCALCIFEROL
     Indication: SUPPLEMENTATION THERAPY
     Dosage: 2000 IU, UNK
     Route: 048

REACTIONS (7)
  - Musculoskeletal discomfort [Recovering/Resolving]
  - Muscle spasms [Recovering/Resolving]
  - Myalgia [Recovering/Resolving]
  - Tendon disorder [Recovering/Resolving]
  - Muscle disorder [Recovering/Resolving]
  - Bone pain [Recovering/Resolving]
  - Muscle tightness [Recovering/Resolving]

NARRATIVE: CASE EVENT DATE: 201212
